FAERS Safety Report 5587973-9 (Version None)
Quarter: 2008Q1

REPORT INFORMATION
  Report Type: 
  Country: None (occurrence: None)
  Receive Date: 20080111
  Receipt Date: 20080109
  Transmission Date: 20080703
  Serious: Yes (Hospitalization, Other)
  Sender: FDA-Public Use
  Company Number: IT-BRISTOL-MYERS SQUIBB COMPANY-13989454

PATIENT
  Age: 83 Year
  Sex: Male

DRUGS (3)
  1. COUMADIN [Suspect]
     Indication: ATRIAL FIBRILLATION
     Route: 048
     Dates: start: 20050101, end: 20071002
  2. LASIX [Concomitant]
     Indication: CARDIOMYOPATHY
     Dates: start: 20060228, end: 20071009
  3. DILATREND [Concomitant]
     Route: 048
     Dates: start: 20060228, end: 20071009

REACTIONS (5)
  - ANAEMIA [None]
  - ASTHENIA [None]
  - HYPERKALAEMIA [None]
  - INTERNATIONAL NORMALISED RATIO INCREASED [None]
  - MELAENA [None]
